FAERS Safety Report 6986554-X (Version None)
Quarter: 2010Q3

REPORT INFORMATION
  Report Type: 
  Country: None (occurrence: None)
  Receive Date: 20100827
  Receipt Date: 20100414
  Transmission Date: 20110219
  Serious: Yes (Other)
  Sender: FDA-Public Use
  Company Number: AMAG201000203

PATIENT
  Age: 52 Year
  Sex: Male
  Weight: 96.5 kg

DRUGS (5)
  1. FERAHEME [Suspect]
     Indication: IRON DEFICIENCY ANAEMIA
     Dosage: 5 ML (150MG), SINGLE, INTRAVENOUS
     Route: 042
     Dates: start: 20100414, end: 20100414
  2. TUMS (CALCIUM CARBONATE) [Concomitant]
  3. MULTIVITAMINS, OTHER COMBINATIONS [Concomitant]
  4. EPOGEN [Concomitant]
  5. HECTOROL [Concomitant]

REACTIONS (7)
  - ANAPHYLACTIC REACTION [None]
  - BLOOD PRESSURE INCREASED [None]
  - CHEST PAIN [None]
  - DYSPNOEA [None]
  - FACE OEDEMA [None]
  - FLUSHING [None]
  - HEART RATE INCREASED [None]
